FAERS Safety Report 4562156-X (Version None)
Quarter: 2005Q1

REPORT INFORMATION
  Report Type: 
  Country: None (occurrence: None)
  Receive Date: 20050124
  Receipt Date: 20050114
  Transmission Date: 20050727
  Serious: Yes (Other)
  Sender: FDA-Public Use
  Company Number: KII-2005-0014610

PATIENT
  Age: 22 Year
  Sex: Male

DRUGS (6)
  1. MORPHINE SULFATE [Suspect]
     Indication: DRUG USE FOR UNKNOWN INDICATION
     Dosage: ORAL
     Route: 048
  2. DIPHENHYDRAMINE (DIPHENHYDRAMINE) [Suspect]
     Indication: DRUG USE FOR UNKNOWN INDICATION
     Dosage: SEE TEXT, ORAL
     Route: 048
  3. COCAINE (COCAINE) [Suspect]
     Indication: DRUG USE FOR UNKNOWN INDICATION
  4. TRAZODONE (TRAZODONE) [Concomitant]
  5. STRATTERA [Concomitant]
  6. SSRI [Concomitant]

REACTIONS (5)
  - ABNORMAL CHEST SOUND [None]
  - DRUG SCREEN POSITIVE [None]
  - LETHARGY [None]
  - OXYGEN SATURATION DECREASED [None]
  - RESPIRATORY ARREST [None]
